FAERS Safety Report 9242968 (Version 3)
Quarter: 2016Q3

REPORT INFORMATION
  Report Type: Spontaneous
  Country: US (occurrence: US)
  Receive Date: 20130419
  Receipt Date: 20160822
  Transmission Date: 20161109
  Serious: Yes (Hospitalization, Other)
  Sender: FDA-Public Use
  Company Number: US-009507513-1304USA007595

PATIENT
  Sex: Female

DRUGS (4)
  1. ALENDRONATE SODIUM. [Suspect]
     Active Substance: ALENDRONATE SODIUM
     Indication: OSTEOPENIA
     Dosage: 70 MG, UNK
     Route: 048
     Dates: start: 20080325, end: 20101015
  2. FOSAMAX [Suspect]
     Active Substance: ALENDRONATE SODIUM
     Indication: OSTEOPENIA
     Dosage: 70 MG, UNK
     Route: 048
     Dates: start: 20030428, end: 20080108
  3. ALENDRONATE SODIUM. [Suspect]
     Active Substance: ALENDRONATE SODIUM
     Indication: OSTEOPENIA
     Dosage: 70 MG, UNK
     Route: 048
     Dates: start: 20080325, end: 20101015
  4. PAROXETINE. [Concomitant]
     Active Substance: PAROXETINE
     Indication: PRODUCT USED FOR UNKNOWN INDICATION
     Dosage: UNK
     Route: 065
     Dates: start: 2000

REACTIONS (28)
  - Papillary thyroid cancer [Unknown]
  - Fall [Unknown]
  - Osteoarthritis [Unknown]
  - Cough [Unknown]
  - Femur fracture [Recovered/Resolved]
  - Pyrexia [Recovered/Resolved]
  - Joint swelling [Recovered/Resolved]
  - Drug hypersensitivity [Unknown]
  - Hypotension [Recovered/Resolved]
  - Haemoglobin decreased [Recovered/Resolved]
  - Abnormal loss of weight [Unknown]
  - Complication associated with device [Unknown]
  - Hypothyroidism [Unknown]
  - Hand fracture [Unknown]
  - Haemorrhagic anaemia [Unknown]
  - Hypovolaemia [Recovered/Resolved]
  - Hyperlipidaemia [Unknown]
  - Medical device removal [Unknown]
  - Fall [Unknown]
  - Hypertension [Unknown]
  - Atelectasis [Recovered/Resolved]
  - Bursitis [Unknown]
  - Mastectomy [Unknown]
  - Depression [Unknown]
  - Limb asymmetry [Not Recovered/Not Resolved]
  - Procedural pain [Not Recovered/Not Resolved]
  - Femur fracture [Recovered/Resolved with Sequelae]
  - Fall [Unknown]

NARRATIVE: CASE EVENT DATE: 2006
